FAERS Safety Report 7227163-7 (Version None)
Quarter: 2011Q1

REPORT INFORMATION
  Report Type: 
  Country: None (occurrence: None)
  Receive Date: 20110114
  Receipt Date: 20110105
  Transmission Date: 20110831
  Serious: Yes (Hospitalization)
  Sender: FDA-Public Use
  Company Number: US-ELI_LILLY_AND_COMPANY-US201011003353

PATIENT
  Sex: Male
  Weight: 81.633 kg

DRUGS (8)
  1. ASPIRIN [Concomitant]
     Dosage: 81 MG, OTHER
     Route: 065
     Dates: start: 20100706, end: 20100706
  2. ASPIRIN [Concomitant]
     Dosage: 325 MG, DAILY (1/D)
     Route: 065
     Dates: start: 20100707
  3. LOVAZA [Concomitant]
     Indication: HYPERCHOLESTEROLAEMIA
     Dosage: 1 G, DAILY (1/D)
     Route: 048
  4. LIPITOR [Concomitant]
     Indication: HYPERCHOLESTEROLAEMIA
     Dosage: 20 MG, DAILY (1/D)
     Route: 048
  5. PRASUGREL HYDROCHLORIDE [Suspect]
     Indication: ACUTE CORONARY SYNDROME
     Dosage: 60 MG, UNKNOWN
     Route: 065
     Dates: start: 20100706, end: 20100706
  6. NORVASC [Concomitant]
     Indication: HYPERTENSION
     Dosage: 5 MG, DAILY (1/D)
     Route: 048
  7. FOLIC ACID [Concomitant]
     Indication: SUPPLEMENTATION THERAPY
     Dosage: 1 MG, DAILY (1/D)
     Route: 048
  8. PRASUGREL HYDROCHLORIDE [Suspect]
     Dosage: 10 MG, DAILY (1/D)
     Route: 065
     Dates: start: 20100707

REACTIONS (1)
  - CHEST PAIN [None]
